FAERS Safety Report 14841081 (Version 1)
Quarter: 2018Q2

REPORT INFORMATION
  Report Type: Spontaneous
  Country: US (occurrence: US)
  Receive Date: 20180503
  Receipt Date: 20180503
  Transmission Date: 20180711
  Serious: No
  Sender: FDA-Public Use
  Company Number: US-TEVA-2018-US-886491

PATIENT
  Sex: Male

DRUGS (1)
  1. RISEDRONIC SODIUM [Suspect]
     Active Substance: RISEDRONIC ACID
     Dates: start: 20170310, end: 201705

REACTIONS (2)
  - Creatinine renal clearance increased [Recovered/Resolved]
  - Renal function test abnormal [Recovered/Resolved]

NARRATIVE: CASE EVENT DATE: 201703
